FAERS Safety Report 4866707-7 (Version None)
Quarter: 2005Q4

REPORT INFORMATION
  Report Type: 
  Country: None (occurrence: None)
  Receive Date: 20051221
  Receipt Date: 20051214
  Transmission Date: 20060501
  Serious: Yes (Hospitalization, Other)
  Sender: FDA-Public Use
  Company Number: L05-FIN-05666-04

PATIENT
  Age: 29 Year
  Sex: Female

DRUGS (6)
  1. CARBAMAZEPINE [Suspect]
     Indication: EPILEPSY
     Dosage: 0.8 G
  2. CARBAMAZEPINE [Suspect]
     Indication: EPILEPSY
     Dosage: 1 G
  3. VIGABATRIN [Suspect]
     Indication: EPILEPSY
     Dosage: 2 G
  4. VIGABATRIN [Suspect]
     Indication: EPILEPSY
     Dosage: 3 G
  5. FOLIC ACID [Concomitant]
  6. VALPROIC ACID [Concomitant]

REACTIONS (4)
  - CAESAREAN SECTION [None]
  - DRUG EXPOSURE DURING PREGNANCY [None]
  - DRUG RESISTANCE [None]
  - STATUS EPILEPTICUS [None]
